FAERS Safety Report 6153564-4 (Version None)
Quarter: 2009Q2

REPORT INFORMATION
  Report Type: 
  Country: None (occurrence: None)
  Receive Date: 20090409
  Receipt Date: 20090409
  Transmission Date: 20091009
  Serious: Yes (Death, Life-Threatening, Hospitalization, Disabling, Other)
  Sender: FDA-Public Use
  Company Number: None

PATIENT

DRUGS (1)
  1. WARFARIN SODIUM [Suspect]
     Dosage: DAILY PO
     Route: 048

REACTIONS (2)
  - CEREBRAL HAEMORRHAGE [None]
  - PRODUCT QUALITY ISSUE [None]
